FAERS Safety Report 23471985 (Version 1)
Quarter: 2024Q1

REPORT INFORMATION
  Report Type: Spontaneous
  Country: US (occurrence: US)
  Receive Date: 20240202
  Receipt Date: 20240202
  Transmission Date: 20240410
  Serious: Yes (Other)
  Sender: FDA-Public Use
  Company Number: US-RADIUS HEALTH INC.-2024US000480

PATIENT
  Sex: Female
  Weight: 58.095 kg

DRUGS (2)
  1. TYMLOS [Suspect]
     Active Substance: ABALOPARATIDE
     Indication: Senile osteoporosis
     Dosage: 80 MICROGRAM, QD
     Route: 058
  2. HISTAMINE PHOSPHATE [Concomitant]
     Active Substance: HISTAMINE PHOSPHATE
     Indication: Meniere^s disease
     Route: 023

REACTIONS (1)
  - Meniere^s disease [Unknown]
